FAERS Safety Report 4891071-7 (Version None)
Quarter: 2006Q1

REPORT INFORMATION
  Report Type: 
  Country: None (occurrence: None)
  Receive Date: 20060123
  Receipt Date: 20060118
  Transmission Date: 20060701
  Serious: Yes (Hospitalization)
  Sender: FDA-Public Use
  Company Number: S05-FRA-05676-01

PATIENT
  Age: 81 Year
  Sex: Female
  Weight: 76 kg

DRUGS (7)
  1. CITALOPRAM HYDROBROMIDE [Suspect]
     Indication: DEPRESSION
     Dosage: 80 MG ONCE PO
     Route: 048
     Dates: start: 20051008, end: 20051008
  2. CITALOPRAM HYDROBROMIDE [Suspect]
     Indication: DEPRESSION
     Dosage: 20 MG QD PO
     Route: 048
     Dates: start: 20051007, end: 20051007
  3. OROCAL (CALCIUM CARBONATE) [Concomitant]
  4. IMOVANE (ZOPICLONE) [Concomitant]
  5. LEVOTHYROXINE SODIUM [Concomitant]
  6. MODURETIC 5-50 [Concomitant]
  7. SOTALOL HCL [Concomitant]

REACTIONS (4)
  - CONVULSION [None]
  - CREATININE RENAL CLEARANCE DECREASED [None]
  - HYPONATRAEMIA [None]
  - OVERDOSE [None]
